FAERS Safety Report 4784785-0 (Version None)
Quarter: 2005Q3

REPORT INFORMATION
  Report Type: 
  Country: None (occurrence: None)
  Receive Date: 20050928
  Receipt Date: 20050912
  Transmission Date: 20060218
  Serious: Yes (Hospitalization, Other)
  Sender: FDA-Public Use
  Company Number: US_0504115653

PATIENT
  Age: 33 Year
  Sex: 0

DRUGS (1)
  1. ZYPREXA [Suspect]
     Indication: DEPRESSION
     Dates: start: 20010101

REACTIONS (5)
  - BLOOD POTASSIUM DECREASED [None]
  - DIARRHOEA HAEMORRHAGIC [None]
  - GASTRITIS HAEMORRHAGIC [None]
  - HYPERGLYCAEMIA [None]
  - PANCREATITIS [None]
